FAERS Safety Report 6594121-5 (Version None)
Quarter: 2010Q1

REPORT INFORMATION
  Report Type: 
  Country: None (occurrence: None)
  Receive Date: 20100222
  Receipt Date: 20100216
  Transmission Date: 20100710
  Serious: Yes (Hospitalization)
  Sender: FDA-Public Use
  Company Number: US-B.I. PHARMACEUTICALS,INC./RIDGEFIELD-2009-BP-14749BP

PATIENT
  Sex: Female

DRUGS (13)
  1. SPIRIVA [Suspect]
     Indication: EMPHYSEMA
     Dosage: 18 MCG
     Route: 055
     Dates: start: 20040101
  2. SPIRIVA [Suspect]
     Indication: CHRONIC OBSTRUCTIVE PULMONARY DISEASE
  3. ATACAND [Concomitant]
  4. LOPID [Concomitant]
  5. POT CHORINE [Concomitant]
  6. PLAVIX [Concomitant]
  7. LASIX [Concomitant]
  8. ASPIRIN [Concomitant]
  9. OXYGEN [Concomitant]
  10. TRAZODONE HCL [Concomitant]
     Dosage: 50 MG
  11. PRILOSEC [Concomitant]
     Dosage: 20 MG
  12. SIMVASTATIN [Concomitant]
     Dosage: 80 MG
  13. DIAZEPAM [Concomitant]
     Dosage: 1/2 IN MORNING AND AT NOON; 1 AT NIGHT

REACTIONS (1)
  - PNEUMONIA [None]
